FAERS Safety Report 19493398 (Version 1)
Quarter: 2021Q3

REPORT INFORMATION
  Report Type: Spontaneous
  Country: US (occurrence: US)
  Receive Date: 20210705
  Receipt Date: 20210705
  Transmission Date: 20211014
  Serious: No
  Sender: FDA-Public Use
  Company Number: US-SA-2021SA217557

PATIENT
  Age: 7 Year
  Sex: Male

DRUGS (1)
  1. DUPIXENT [Suspect]
     Active Substance: DUPILUMAB
     Dosage: 600 MG, 1X
     Route: 050
     Dates: start: 20210626

REACTIONS (8)
  - Insomnia [Unknown]
  - Dry skin [Unknown]
  - Skin exfoliation [Unknown]
  - Injection site pain [Unknown]
  - Off label use of device [Unknown]
  - Skin fissures [Unknown]
  - Skin haemorrhage [Unknown]
  - Skin weeping [Unknown]

NARRATIVE: CASE EVENT DATE: 202106
